FAERS Safety Report 9170060 (Version 1)
Quarter: 2013Q1

REPORT INFORMATION
  Report Type: Spontaneous
  Country: US (occurrence: None)
  Receive Date: 20130313
  Receipt Date: 20130313
  Transmission Date: 20140127
  Serious: Yes (Hospitalization)
  Sender: FDA-Public Use
  Company Number: 2013US001219

PATIENT
  Age: 56 Year
  Sex: Male
  Weight: 64.4 kg

DRUGS (6)
  1. ICLUSIG [Suspect]
     Indication: ACUTE LYMPHOCYTIC LEUKAEMIA
     Dosage: 45 MG,  QD,  ORAL?02/11/2013  TO  ONGOING
     Route: 048
     Dates: start: 20130211
  2. FLUCONAZOLE (FLUCONAZOLE) [Concomitant]
  3. ZOVIRAX (ACICLOVIR) [Concomitant]
  4. BACTRIM [Concomitant]
  5. TOPROL (METOPROLOL SUCCINATE) [Concomitant]
  6. RANITIDINE (RANITIDINE) [Concomitant]

REACTIONS (1)
  - Presyncope [None]
